FAERS Safety Report 6763856-3 (Version None)
Quarter: 2010Q2

REPORT INFORMATION
  Report Type: 
  Country: None (occurrence: None)
  Receive Date: 20100610
  Receipt Date: 20100607
  Transmission Date: 20101027
  Serious: No
  Sender: FDA-Public Use
  Company Number: US-ROXANE LABORATORIES, INC.-2010-RO-00692RO

PATIENT
  Sex: Male

DRUGS (1)
  1. ZOLPIDEM [Suspect]

REACTIONS (1)
  - DRUG INEFFECTIVE [None]
